FAERS Safety Report 4994948-7 (Version None)
Quarter: 2006Q2

REPORT INFORMATION
  Report Type: 
  Country: None (occurrence: None)
  Receive Date: 20060503
  Receipt Date: 20060419
  Transmission Date: 20061013
  Serious: Yes (Other)
  Sender: FDA-Public Use
  Company Number: 2006BH005965

PATIENT
  Age: 75 Year
  Sex: Female

DRUGS (4)
  1. BALANCED SALT SOLUTION [Suspect]
     Indication: CATARACT OPERATION
     Dosage: 500 ML;
  2. BALANCED SALT SOLUTION [Suspect]
  3. KENALOG [Suspect]
     Indication: CATARACT OPERATION
  4. KENALOG [Concomitant]

REACTIONS (4)
  - BLOOD CULTURE POSITIVE [None]
  - ENDOPHTHALMITIS [None]
  - POST PROCEDURAL COMPLICATION [None]
  - STREPTOCOCCAL INFECTION [None]
